FAERS Safety Report 7563993-X (Version None)
Quarter: 2011Q2

REPORT INFORMATION
  Report Type: 
  Country: None (occurrence: None)
  Receive Date: 20110622
  Receipt Date: 20110615
  Transmission Date: 20111010
  Serious: Yes (Hospitalization)
  Sender: FDA-Public Use
  Company Number: US-B.I. PHARMACEUTICALS,INC./RIDGEFIELD-2011-BP-08909BP

PATIENT
  Sex: Female

DRUGS (15)
  1. VITAMIN B-12 [Concomitant]
  2. PREVACID [Concomitant]
     Dosage: 30 MG
  3. B6 [Concomitant]
  4. PRADAXA [Suspect]
     Indication: CARDIAC DISORDER
     Dosage: 300 MG
  5. LORCET-HD [Concomitant]
  6. LOPRESSOR [Concomitant]
     Dosage: 25 MG
  7. ZOFRAM [Concomitant]
  8. ACETAMINOPHEN [Concomitant]
  9. ALBUTEROL SULFATE AUTOHALER [Concomitant]
  10. HYDROCHLOROTHIAZIDE [Concomitant]
  11. HUMALIN [Concomitant]
  12. HUMALIN [Concomitant]
  13. DEMADEX [Concomitant]
     Dosage: 20 MG
  14. NORVASC [Concomitant]
     Dosage: 10 MG
  15. SYNTHROID [Concomitant]
     Dosage: 100 MCG

REACTIONS (3)
  - HAEMATEMESIS [None]
  - INTESTINAL HAEMORRHAGE [None]
  - AZOTAEMIA [None]
